FAERS Safety Report 9791402 (Version 1)
Quarter: 2014Q1

REPORT INFORMATION
  Report Type: Spontaneous
  Country: US (occurrence: US)
  Receive Date: 20140101
  Receipt Date: 20140101
  Transmission Date: 20141002
  Serious: Yes (Other)
  Sender: FDA-Public Use
  Company Number: US-ASTRAZENECA-2013SE93529

PATIENT
  Age: 9703 Day
  Sex: Male

DRUGS (5)
  1. LISINOPRIL [Suspect]
     Route: 048
  2. PRILOSEC [Suspect]
     Route: 048
  3. IBUPROFEN [Suspect]
     Route: 065
  4. NORCO [Suspect]
     Indication: BREAKTHROUGH PAIN
     Route: 065
  5. BUTRANS [Suspect]
     Route: 065

REACTIONS (3)
  - Laceration [Unknown]
  - Syncope [Unknown]
  - Road traffic accident [Unknown]
